FAERS Safety Report 12068573 (Version 1)
Quarter: 2016Q1

REPORT INFORMATION
  Report Type: Spontaneous
  Country: FR (occurrence: FR)
  Receive Date: 20160211
  Receipt Date: 20160211
  Transmission Date: 20160526
  Serious: Yes (Disabling, Congenital Anomaly, Other)
  Sender: FDA-Public Use
  Company Number: FR-BRISTOL-MYERS SQUIBB COMPANY-12223970

PATIENT
  Sex: Female
  Weight: 2.28 kg

DRUGS (6)
  1. ECAZIDE - HYDROCHLOROTHIAZIDE, CAPTOPRIL [Suspect]
     Active Substance: CAPTOPRIL\HYDROCHLOROTHIAZIDE
     Indication: PRODUCT USED FOR UNKNOWN INDICATION
     Dosage: DOSE: 50 MG/25 MG TABLETS.
     Route: 064
     Dates: end: 20020927
  2. CAPTOPRIL. [Suspect]
     Active Substance: CAPTOPRIL
     Indication: PRODUCT USED FOR UNKNOWN INDICATION
     Dosage: 50 MG, QD
     Route: 064
     Dates: end: 20020927
  3. XANAX [Suspect]
     Active Substance: ALPRAZOLAM
     Indication: PRODUCT USED FOR UNKNOWN INDICATION
     Dosage: 0.25 MG, QD
     Route: 064
     Dates: end: 20020927
  4. DEROXAT [Suspect]
     Active Substance: PAROXETINE HYDROCHLORIDE
     Indication: PRODUCT USED FOR UNKNOWN INDICATION
     Dosage: 20 MG, QD
     Route: 064
     Dates: end: 20020927
  5. INSULIN [Suspect]
     Active Substance: INSULIN NOS
     Indication: PRODUCT USED FOR UNKNOWN INDICATION
     Dosage: UNK
     Route: 064
  6. TERCIAN [Suspect]
     Active Substance: CYAMEMAZINE
     Indication: PRODUCT USED FOR UNKNOWN INDICATION
     Route: 064
     Dates: end: 20020927

REACTIONS (8)
  - Pulmonary artery stenosis [Recovered/Resolved with Sequelae]
  - Acquired cardiac septal defect [Recovered/Resolved with Sequelae]
  - Maternal drugs affecting foetus [None]
  - Low birth weight baby [Recovered/Resolved]
  - Foetal exposure during pregnancy [Recovered/Resolved with Sequelae]
  - Transposition of the great vessels [Recovered/Resolved with Sequelae]
  - Atrophy [Recovered/Resolved with Sequelae]
  - Heart disease congenital [Recovered/Resolved with Sequelae]

NARRATIVE: CASE EVENT DATE: 20020630
